FAERS Safety Report 5050066-3 (Version None)
Quarter: 2006Q3

REPORT INFORMATION
  Report Type: 
  Country: None (occurrence: None)
  Receive Date: 20060713
  Receipt Date: 20060703
  Transmission Date: 20061208
  Serious: Yes (Death)
  Sender: FDA-Public Use
  Company Number: US-JNJFOC-20060203231

PATIENT
  Sex: Male
  Weight: 106.6 kg

DRUGS (6)
  1. DURAGESIC-100 [Suspect]
     Indication: PAIN
     Dosage: (5) 50 MEQ AT ONE TIME
     Route: 062
  2. ENDOCET [Interacting]
     Indication: PAIN
  3. TOPAMAX [Interacting]
     Indication: NEURALGIA
     Route: 048
  4. HYDROCODONE [Interacting]
     Indication: PAIN
  5. XANAX [Interacting]
     Indication: DRUG USE FOR UNKNOWN INDICATION
  6. CANNABIS [Interacting]
     Indication: DRUG USE FOR UNKNOWN INDICATION

REACTIONS (3)
  - BRONCHOPNEUMONIA [None]
  - DRUG INTERACTION [None]
  - MULTIPLE DRUG OVERDOSE [None]
